FAERS Safety Report 6535639-0 (Version None)
Quarter: 2010Q1

REPORT INFORMATION
  Report Type: 
  Country: None (occurrence: None)
  Receive Date: 20100113
  Receipt Date: 20100111
  Transmission Date: 20100710
  Serious: Yes (Death, Hospitalization, Other)
  Sender: FDA-Public Use
  Company Number: PHHY2009BR41426

PATIENT
  Sex: Male

DRUGS (3)
  1. DIOVAN [Suspect]
     Indication: CARDIAC DISORDER
     Dosage: 160 MG
     Route: 048
  2. FORASEQ [Suspect]
     Dosage: UNK
     Dates: start: 20070101
  3. SPIRIVA [Concomitant]

REACTIONS (2)
  - DYSPNOEA [None]
  - PNEUMONIA BACTERIAL [None]
